FAERS Safety Report 8183341-4 (Version None)
Quarter: 2012Q1

REPORT INFORMATION
  Report Type: 
  Country: None (occurrence: None)
  Receive Date: 20120305
  Receipt Date: 20120220
  Transmission Date: 20120608
  Serious: Yes (Other)
  Sender: FDA-Public Use
  Company Number: ES-MYLANLABS-2012S1003995

PATIENT
  Age: 65 Year
  Sex: Female

DRUGS (2)
  1. ADENOSINE [Interacting]
     Indication: ATRIAL TACHYCARDIA
     Route: 042
  2. ATENOLOL [Suspect]
     Indication: ATRIAL TACHYCARDIA
     Dosage: 50 MG/DAY
     Route: 065

REACTIONS (2)
  - BRONCHOSPASM [None]
  - POTENTIATING DRUG INTERACTION [None]
